FAERS Safety Report 20852555 (Version 1)
Quarter: 2022Q2

REPORT INFORMATION
  Report Type: Spontaneous
  Country: FR (occurrence: FR)
  Receive Date: 20220520
  Receipt Date: 20220520
  Transmission Date: 20220720
  Serious: Yes (Hospitalization)
  Sender: FDA-Public Use
  Company Number: None

PATIENT
  Age: 47 Year
  Sex: Male

DRUGS (3)
  1. AMOXICILLIN [Suspect]
     Active Substance: AMOXICILLIN
     Indication: Viral infection
     Dosage: 3 DOSAGE FORM, QD
     Route: 048
     Dates: start: 20220401, end: 20220406
  2. PREDNISOLONE SODIUM METAZOATE [Suspect]
     Active Substance: PREDNISOLONE SODIUM METAZOATE
     Indication: Viral infection
     Dosage: 1 DOSAGE FORM, QD
     Route: 048
     Dates: start: 20220401, end: 20220406
  3. MAXILASE [Suspect]
     Active Substance: PANCRELIPASE
     Indication: Viral infection
     Dosage: 3 DOSAGE FORM, QD
     Route: 048
     Dates: start: 20220401, end: 20220406

REACTIONS (1)
  - Stevens-Johnson syndrome [Recovered/Resolved]

NARRATIVE: CASE EVENT DATE: 20220406
